FAERS Safety Report 7374670-2 (Version None)
Quarter: 2011Q1

REPORT INFORMATION
  Report Type: 
  Country: None (occurrence: None)
  Receive Date: 20110325
  Receipt Date: 20100707
  Transmission Date: 20110831
  Serious: No
  Sender: FDA-Public Use
  Company Number: US-MYLANLABS-2010S1012270

PATIENT
  Age: 42 Year
  Sex: Male
  Weight: 77.11 kg

DRUGS (4)
  1. KLONOPIN [Concomitant]
     Indication: ANXIETY
     Dates: start: 20080101
  2. AMBIEN [Concomitant]
     Indication: INSOMNIA
     Dates: start: 20080101
  3. FENTANYL-100 [Suspect]
     Indication: NECK PAIN
     Dosage: CHANGED Q3D
     Route: 062
     Dates: start: 20070101
  4. OXYCODONE [Concomitant]
     Indication: BREAKTHROUGH PAIN
     Dates: start: 20060101

REACTIONS (3)
  - DRUG INEFFECTIVE [None]
  - DRUG WITHDRAWAL SYNDROME [None]
  - NECK PAIN [None]
